FAERS Safety Report 24678549 (Version 1)
Quarter: 2024Q4

REPORT INFORMATION
  Report Type: Spontaneous
  Country: US (occurrence: US)
  Receive Date: 20241129
  Receipt Date: 20241129
  Transmission Date: 20250115
  Serious: Yes (Death, Hospitalization, Other)
  Sender: MERCK
  Company Number: US-009507513-2410USA000062

PATIENT
  Sex: Male
  Weight: 67.574 kg

DRUGS (1)
  1. WINREVAIR [Suspect]
     Active Substance: SOTATERCEPT-CSRK
     Indication: Pulmonary arterial hypertension
     Dosage: UNK
     Route: 058
     Dates: start: 202405, end: 202409

REACTIONS (5)
  - Right ventricular failure [Fatal]
  - Respiratory failure [Fatal]
  - Pulmonary arterial hypertension [Fatal]
  - Gastrointestinal haemorrhage [Fatal]
  - Mucosal disorder [Unknown]

NARRATIVE: CASE EVENT DATE: 20240101
